FAERS Safety Report 7136696-3 (Version None)
Quarter: 2010Q4

REPORT INFORMATION
  Report Type: 
  Country: None (occurrence: None)
  Receive Date: 20101206
  Receipt Date: 20070420
  Transmission Date: 20110411
  Serious: Yes (Death)
  Sender: FDA-Public Use
  Company Number: US-ACTELION-A-NJ2007-15230

PATIENT

DRUGS (10)
  1. ILOPROST INHALATION SOLUTION 5UG US [Suspect]
     Indication: PULMONARY HYPERTENSION
     Dosage: 5 UG, 9 X DAY
     Route: 055
     Dates: start: 20070301, end: 20070419
  2. OXYGEN [Concomitant]
  3. ALDACTONE [Concomitant]
  4. COUMADIN [Concomitant]
  5. SYNTHROID [Concomitant]
  6. NASACORT [Concomitant]
  7. DECLOMYCIN [Concomitant]
  8. ZANTAC [Concomitant]
  9. CALCIUM [Concomitant]
  10. CARDIZEM [Concomitant]

REACTIONS (1)
  - DEATH [None]
